FAERS Safety Report 7466812-5 (Version None)
Quarter: 2011Q2

REPORT INFORMATION
  Report Type: 
  Country: None (occurrence: None)
  Receive Date: 20110509
  Receipt Date: 20110502
  Transmission Date: 20111010
  Serious: Yes (Other)
  Sender: FDA-Public Use
  Company Number: JP-MERCK-1104USA02261

PATIENT
  Age: 63 Year
  Sex: Female

DRUGS (2)
  1. FOSAMAX [Suspect]
     Dosage: DAILY DOSAGE UNKNOWN
     Route: 048
     Dates: start: 20030101
  2. PREDONINE [Concomitant]
     Dosage: DIVIDED DOSE FREQUENCY U
     Route: 048

REACTIONS (4)
  - FALL [None]
  - IMPAIRED HEALING [None]
  - FRACTURE DELAYED UNION [None]
  - FEMUR FRACTURE [None]
